FAERS Safety Report 4439456-7 (Version None)
Quarter: 2004Q3

REPORT INFORMATION
  Report Type: 
  Country: None (occurrence: None)
  Receive Date: 20040728
  Receipt Date: 20040331
  Transmission Date: 20050211
  Serious: No
  Sender: FDA-Public Use
  Company Number: USA040361425

PATIENT
  Age: 52 Year
  Sex: Female
  Weight: 68 kg

DRUGS (6)
  1. STRATTERA [Suspect]
     Indication: ATTENTION DEFICIT/HYPERACTIVITY DISORDER
     Dosage: 40 MG IN THE MORNING
     Dates: start: 20040201
  2. VIOXX [Concomitant]
  3. ATENOLOL [Concomitant]
  4. ALLEGRA [Concomitant]
  5. NASONEX [Concomitant]
  6. ACIPHEX [Concomitant]

REACTIONS (11)
  - CHILLS [None]
  - CONSTIPATION [None]
  - DIZZINESS [None]
  - DRUG EFFECT DECREASED [None]
  - EYE PRURITUS [None]
  - FATIGUE [None]
  - IMPATIENCE [None]
  - NASOPHARYNGITIS [None]
  - NAUSEA [None]
  - PERIPHERAL COLDNESS [None]
  - URTICARIA [None]
